FAERS Safety Report 4329608-9 (Version None)
Quarter: 2004Q1

REPORT INFORMATION
  Report Type: 
  Country: None (occurrence: None)
  Receive Date: 20040329
  Receipt Date: 20040217
  Transmission Date: 20041129
  Serious: No
  Sender: FDA-Public Use
  Company Number: 04P-163-0250642-00

PATIENT
  Age: 61 Year
  Sex: Female
  Weight: 69.4003 kg

DRUGS (7)
  1. HUMIRA [Suspect]
     Indication: RHEUMATOID ARTHRITIS
     Dosage: 40 MG, 1 IN 2 WK, SUBCUTANEOUS
     Route: 058
     Dates: start: 20040121
  2. METHOTREXATE [Concomitant]
  3. PREDNISONE [Concomitant]
  4. KETOPROFEN [Concomitant]
  5. FOLIC ACID [Concomitant]
  6. PROPACET 100 [Concomitant]
  7. RISEDRONATE SODIUM [Concomitant]

REACTIONS (1)
  - RHINORRHOEA [None]
